FAERS Safety Report 18665981 (Version 1)
Quarter: 2020Q4

REPORT INFORMATION
  Report Type: Spontaneous
  Country: GB (occurrence: GB)
  Receive Date: 20201226
  Receipt Date: 20201226
  Transmission Date: 20210114
  Serious: Yes (Other)
  Sender: FDA-Public Use
  Company Number: GB-TEVA-2020-GB-1860959

PATIENT
  Age: 73 Year
  Sex: Female
  Weight: 72 kg

DRUGS (9)
  1. AMITRIPTYLINE [Concomitant]
     Active Substance: AMITRIPTYLINE
  2. SPIRONOLACTONE. [Concomitant]
     Active Substance: SPIRONOLACTONE
  3. DOCUSATE [Concomitant]
     Active Substance: DOCUSATE
  4. BISOPROLOL [Concomitant]
     Active Substance: BISOPROLOL
  5. FUROSEMIDE. [Concomitant]
     Active Substance: FUROSEMIDE
  6. CANDESARTAN. [Concomitant]
     Active Substance: CANDESARTAN
  7. ACETYLSALICYLIC ACID [Concomitant]
     Active Substance: ASPIRIN
  8. ROSUVASTATIN. [Concomitant]
     Active Substance: ROSUVASTATIN
  9. ACICLOVIR [Suspect]
     Active Substance: ACYCLOVIR
     Indication: HERPES ZOSTER
     Dosage: 1600MILLIGRAM
     Route: 048
     Dates: start: 20201120, end: 20201124

REACTIONS (3)
  - Insomnia [Unknown]
  - Hallucinations, mixed [Unknown]
  - Emotional distress [Unknown]

NARRATIVE: CASE EVENT DATE: 20201124
